FAERS Safety Report 7819010-7 (Version None)
Quarter: 2011Q4

REPORT INFORMATION
  Report Type: 
  Country: None (occurrence: None)
  Receive Date: 20111018
  Receipt Date: 20111013
  Transmission Date: 20120403
  Serious: Yes (Death, Other)
  Sender: FDA-Public Use
  Company Number: JP-JNJFOC-20110505184

PATIENT
  Sex: Female
  Weight: 57 kg

DRUGS (16)
  1. CEFAZOLIN SODIUM [Concomitant]
     Indication: PROPHYLAXIS
     Route: 048
     Dates: start: 20090904
  2. DOXORUBICIN HCL [Suspect]
     Indication: OVARIAN CANCER RECURRENT
     Dosage: CYCLE 4
     Route: 042
     Dates: start: 20091120, end: 20091120
  3. GEMZAR [Suspect]
     Indication: OVARIAN CANCER RECURRENT
     Route: 041
     Dates: start: 20090612
  4. CELECOXIB [Concomitant]
     Indication: PROPHYLAXIS
     Route: 048
     Dates: start: 20080402
  5. CARBOPLATIN [Suspect]
     Indication: OVARIAN CANCER RECURRENT
     Route: 041
     Dates: start: 20091002
  6. HERCEPTIN [Concomitant]
     Indication: BREAST CANCER
     Route: 041
     Dates: start: 20081029
  7. NEUTROGIN [Concomitant]
     Indication: NEUTROPHIL COUNT DECREASED
     Route: 058
     Dates: start: 20091007, end: 20091008
  8. DOXORUBICIN HCL [Suspect]
     Dosage: CYCLE 2
     Route: 042
     Dates: start: 20090821, end: 20090821
  9. DOXORUBICIN HCL [Suspect]
     Dosage: CYCLE 1
     Route: 042
     Dates: start: 20090724, end: 20090724
  10. DOXORUBICIN HCL [Suspect]
     Dosage: CYCLE 3
     Route: 042
     Dates: start: 20090918, end: 20090918
  11. LANSOPRAZOLE [Concomitant]
     Indication: PROPHYLAXIS
     Route: 048
     Dates: start: 20080402
  12. PYDOXAL [Concomitant]
     Indication: PROPHYLAXIS
     Route: 048
     Dates: start: 20090724
  13. DOXORUBICIN HCL [Suspect]
     Dosage: CYCLE 4
     Route: 042
     Dates: start: 20091019, end: 20091019
  14. UNKNOWN MEDICATION [Concomitant]
     Indication: PRODUCT USED FOR UNKNOWN INDICATION
     Route: 042
  15. ITRACONAZOLE [Concomitant]
     Indication: PROPHYLAXIS
     Route: 048
     Dates: start: 20080402
  16. OXALIPLATIN [Suspect]
     Indication: OVARIAN CANCER RECURRENT
     Route: 041
     Dates: start: 20090612, end: 20090904

REACTIONS (4)
  - RED BLOOD CELL COUNT DECREASED [None]
  - NEUTROPHIL COUNT DECREASED [None]
  - WHITE BLOOD CELL COUNT DECREASED [None]
  - DISEASE PROGRESSION [None]
